FAERS Safety Report 5883037-5 (Version None)
Quarter: 2008Q3

REPORT INFORMATION
  Report Type: 
  Country: None (occurrence: None)
  Receive Date: 20080913
  Receipt Date: 20080826
  Transmission Date: 20090109
  Serious: No
  Sender: FDA-Public Use
  Company Number: US-ABBOTT-08P-163-0472687-00

PATIENT
  Age: 66 Year
  Sex: Female

DRUGS (2)
  1. HUMIRA [Suspect]
     Indication: RHEUMATOID ARTHRITIS
  2. VICODIN [Concomitant]
     Indication: PAIN
     Route: 048

REACTIONS (3)
  - GASTROINTESTINAL DISORDER [None]
  - HYPERHIDROSIS [None]
  - NIGHT SWEATS [None]
